FAERS Safety Report 5911140-X (Version None)
Quarter: 2008Q4

REPORT INFORMATION
  Report Type: 
  Country: None (occurrence: None)
  Receive Date: 20081007
  Receipt Date: 20080303
  Transmission Date: 20090506
  Serious: No
  Sender: FDA-Public Use
  Company Number: US-BRISTOL-MYERS SQUIBB COMPANY-14102966

PATIENT
  Sex: Female

DRUGS (2)
  1. AVAPRO [Suspect]
     Indication: BLOOD PRESSURE
  2. AVALIDE [Suspect]
     Indication: BLOOD PRESSURE

REACTIONS (1)
  - GOUT [None]
